FAERS Safety Report 8355359-X (Version None)
Quarter: 2012Q2

REPORT INFORMATION
  Report Type: 
  Country: None (occurrence: None)
  Receive Date: 20120511
  Receipt Date: 20120509
  Transmission Date: 20120825
  Serious: Yes (Death)
  Sender: FDA-Public Use
  Company Number: SZ-ROCHE-1067470

PATIENT
  Age: 88 Year
  Sex: Female

DRUGS (8)
  1. VALSARTAN [Concomitant]
     Route: 048
     Dates: start: 20120229
  2. MABTHERA [Suspect]
     Indication: B-CELL LYMPHOMA
     Dosage: DATE OF LAST DOSE PRIOR TO SAE: 02/MAY/2012
     Route: 042
     Dates: start: 20111213
  3. ASPIRIN [Concomitant]
     Route: 048
  4. LENALIDOMIDE [Suspect]
     Dosage: DATE OF LAST DOSE PRIOR TO SAE: 07/MAY/2012
     Route: 048
     Dates: start: 20120403
  5. METOPROLOL TARTRATE AND HYDROCHLOROTHIAZIDE [Concomitant]
     Route: 048
  6. BENDAMUSTINE HYDROCHLORIDE [Suspect]
     Indication: B-CELL LYMPHOMA
     Dosage: DATE OF LAST DOSE PRIOR TO SAE: 03/MAY/2012
     Route: 042
     Dates: start: 20111213
  7. LENALIDOMIDE [Suspect]
     Indication: B-CELL LYMPHOMA
     Dosage: DATE OF LAST DOSE PRIOR TO SAE: 20/MAR/2012
     Route: 048
     Dates: start: 20111213
  8. CO-ENAC [Concomitant]
     Route: 048
     Dates: end: 20120306

REACTIONS (1)
  - SUDDEN DEATH [None]
